FAERS Safety Report 15305201 (Version 1)
Quarter: 2018Q3

REPORT INFORMATION
  Report Type: Spontaneous
  Country: IN (occurrence: IN)
  Receive Date: 20180822
  Receipt Date: 20180822
  Transmission Date: 20181010
  Serious: Yes (Hospitalization)
  Sender: FDA-Public Use
  Company Number: IN-ABBVIE-18P-078-2456780-00

PATIENT
  Age: 37 Year
  Sex: Female

DRUGS (7)
  1. CETRELIEF [Concomitant]
     Indication: RESTLESSNESS
     Dosage: CETREL MD 05
  2. THYRONORM [Suspect]
     Active Substance: LEVOTHYROXINE
     Dosage: THYRONORM 25 MCG (STOPPED 1.5 YEAR AGO) TOOK FOR 9?10 MONTHS
     Route: 065
  3. DOMPERIDONE MALEATE [Concomitant]
     Active Substance: DOMPERIDONE MALEATE
     Indication: FLATULENCE
     Dosage: SAFEACID
  4. THYRONORM [Suspect]
     Active Substance: LEVOTHYROXINE
     Indication: HYPOTHYROIDISM
     Dosage: THYRONORM 25 MCG (ONCE A DAY) FROM 15 DAYS
     Route: 048
  5. CETRELIEF [Concomitant]
     Indication: LIVER DISORDER
     Dosage: CETREL PLUS
  6. DOMPERIDONE MALEATE [Concomitant]
     Active Substance: DOMPERIDONE MALEATE
     Indication: ACID BASE BALANCE
  7. CETRELIEF [Concomitant]
     Indication: NERVOUSNESS

REACTIONS (11)
  - Pain in extremity [Unknown]
  - Respiratory disorder [Unknown]
  - Restlessness [Unknown]
  - Nervousness [Unknown]
  - Hypersomnia [Unknown]
  - Liver disorder [Unknown]
  - Throat irritation [Unknown]
  - Memory impairment [Unknown]
  - Fatigue [Unknown]
  - Back pain [Unknown]
  - Typhoid fever [Unknown]
